FAERS Safety Report 8778637 (Version 1)
Quarter: 2012Q4

REPORT INFORMATION
  Report Type: 
  Country: DE (occurrence: DE)
  Receive Date: 20120912
  Receipt Date: 20120912
  Transmission Date: 20130627
  Serious: Yes (Life-Threatening, Hospitalization)
  Sender: FDA-Public Use
  Company Number: GXKR2012DE002851

PATIENT

DRUGS (3)
  1. FALITHROM [Suspect]
     Indication: ATRIAL FIBRILLATION
     Dosage: 1.5 mg, QD
     Route: 048
     Dates: end: 20120418
  2. ACETYLSALICYLIC ACID [Suspect]
     Dosage: 100 mg, QD
     Route: 048
  3. CLEXANE [Suspect]
     Dosage: 60 mg, QD
     Route: 058
     Dates: start: 20120419, end: 20120424

REACTIONS (1)
  - Gastrointestinal haemorrhage [Unknown]
